FAERS Safety Report 5010044-7 (Version None)
Quarter: 2006Q2

REPORT INFORMATION
  Report Type: 
  Country: None (occurrence: None)
  Receive Date: 20060523
  Receipt Date: 20060510
  Transmission Date: 20061013
  Serious: Yes (Other)
  Sender: FDA-Public Use
  Company Number: 2006063478

PATIENT
  Sex: Female

DRUGS (1)
  1. ATARAX [Suspect]
     Indication: ILL-DEFINED DISORDER
     Dosage: 25 MG
     Dates: start: 20060101

REACTIONS (4)
  - BURNING SENSATION [None]
  - MOVEMENT DISORDER [None]
  - RASH GENERALISED [None]
  - SKIN EXFOLIATION [None]
